FAERS Safety Report 16178554 (Version 1)
Quarter: 2019Q2

REPORT INFORMATION
  Report Type: Other
  Country: GB (occurrence: GB)
  Receive Date: 20190410
  Receipt Date: 20190410
  Transmission Date: 20190711
  Serious: Yes (Other)
  Sender: FDA-Public Use
  Company Number: GB-LUPIN PHARMACEUTICALS INC.-2019-02162

PATIENT
  Age: 25 Year
  Sex: Male
  Weight: 95.25 kg

DRUGS (1)
  1. QUETIAPINE FUMARATE. [Suspect]
     Active Substance: QUETIAPINE FUMARATE
     Indication: BIPOLAR DISORDER
     Dosage: UNK, VARIED - AS PRESCRIBED BOTH IN AND OUT OF HOSPITAL. CHANGED TO SLOW RELEASE WHICH IMPROVED SYMP
     Route: 048

REACTIONS (6)
  - Anger [Unknown]
  - Confusional state [Unknown]
  - Impulsive behaviour [Recovered/Resolved]
  - Psychotic behaviour [Unknown]
  - Amnesia [Unknown]
  - Emotional poverty [Unknown]
